FAERS Safety Report 23696623 (Version 1)
Quarter: 2024Q2

REPORT INFORMATION
  Report Type: Spontaneous
  Country: US (occurrence: None)
  Receive Date: 20240401
  Receipt Date: 20240401
  Transmission Date: 20240716
  Serious: No
  Sender: FDA-Public Use
  Company Number: None

PATIENT
  Age: 54 Year
  Sex: Female
  Weight: 69.75 kg

DRUGS (7)
  1. .DELTA.8-TETRAHYDROCANNABINOL\HERBALS [Suspect]
     Active Substance: .DELTA.8-TETRAHYDROCANNABINOL\HERBALS
     Indication: Reaction to sweetener
     Dosage: OTHER QUANTITY : 4 OUNCE(S);?OTHER FREQUENCY : NONE SPECIFIC;?OTHER ROUTE : DISSOLVED 1 TEASPOON IN
     Route: 050
     Dates: start: 20240326, end: 20240326
  2. CYCLOBENZAPRINE [Concomitant]
  3. VITAMIN D [Concomitant]
     Active Substance: VITAMIN D NOS
  4. CETIRIZINE HYDROCHLORIDE [Concomitant]
  5. LYSINE [Concomitant]
     Active Substance: LYSINE
  6. ZINC [Concomitant]
     Active Substance: PYRITHIONE ZINC\ZINC\ZINC CHLORIDE
  7. MAGNESIUM GLYCINATE [Concomitant]

REACTIONS (17)
  - Reaction to sweetener [None]
  - Product tampering [None]
  - Product communication issue [None]
  - Dizziness [None]
  - Loss of consciousness [None]
  - Dyskinesia [None]
  - Dyskinesia [None]
  - Blood pressure increased [None]
  - Oxygen saturation decreased [None]
  - Hypopnoea [None]
  - Mouth breathing [None]
  - Near death experience [None]
  - Hallucination [None]
  - Musculoskeletal stiffness [None]
  - Hypoaesthesia [None]
  - Hypoaesthesia [None]
  - Disorientation [None]

NARRATIVE: CASE EVENT DATE: 20240326
